FAERS Safety Report 12602031 (Version 1)
Quarter: 2016Q3

REPORT INFORMATION
  Report Type: Spontaneous
  Country: US (occurrence: None)
  Receive Date: 20160727
  Receipt Date: 20160727
  Transmission Date: 20161109
  Serious: Yes (Hospitalization)
  Sender: FDA-Public Use
  Company Number: None

PATIENT
  Age: 51 Year
  Sex: Male

DRUGS (1)
  1. RIBASPHERE RIBAPAK [Suspect]
     Active Substance: RIBAVIRIN
     Indication: ACUTE HEPATITIS C
     Dosage: 1200MG/DAY (14=1 PK) 600MG - BID PO
     Route: 048
     Dates: start: 20160519

REACTIONS (3)
  - Dizziness [None]
  - Fall [None]
  - Blood count abnormal [None]

NARRATIVE: CASE EVENT DATE: 20160721
